FAERS Safety Report 12143396 (Version 1)
Quarter: 2016Q1

REPORT INFORMATION
  Report Type: Other
  Country: DE (occurrence: DE)
  Receive Date: 20160304
  Receipt Date: 20160304
  Transmission Date: 20160526
  Serious: Yes (Other)
  Sender: FDA-Public Use
  Company Number: DE-LUPIN PHARMACEUTICALS INC.-2016-00099

PATIENT
  Age: 41 Year
  Sex: Male

DRUGS (5)
  1. ISONIAZID. [Concomitant]
     Active Substance: ISONIAZID
     Indication: MYCOBACTERIAL INFECTION
     Route: 065
  2. RIFABUTIN. [Suspect]
     Active Substance: RIFABUTIN
     Indication: MYCOBACTERIAL INFECTION
     Route: 065
     Dates: start: 200707, end: 200803
  3. TRIMETHOPRIM/SULFAMETHOZAXIDE [Concomitant]
     Indication: PRODUCT USED FOR UNKNOWN INDICATION
     Route: 065
     Dates: end: 201410
  4. AZITHROMYCIN ANHYDROUS. [Concomitant]
     Active Substance: AZITHROMYCIN ANHYDROUS
     Indication: MYCOBACTERIAL INFECTION
     Route: 065
     Dates: start: 200707
  5. ETHAMBUTOL [Concomitant]
     Active Substance: ETHAMBUTOL HYDROCHLORIDE
     Indication: MYCOBACTERIAL INFECTION
     Route: 065
     Dates: start: 200707

REACTIONS (1)
  - Pancytopenia [Unknown]

NARRATIVE: CASE EVENT DATE: 200808
